FAERS Safety Report 18672294 (Version 4)
Quarter: 2021Q1

REPORT INFORMATION
  Report Type: Spontaneous
  Country: DE (occurrence: DE)
  Receive Date: 20201229
  Receipt Date: 20210223
  Transmission Date: 20210419
  Serious: Yes (Life-Threatening, Hospitalization, Other)
  Sender: FDA-Public Use
  Company Number: DE-SHILPA MEDICARE LIMITED-SML-DE-2020-00902

PATIENT
  Age: 58 Year
  Sex: Female

DRUGS (4)
  1. CAPECITABINE, UNKNOWN [Suspect]
     Active Substance: CAPECITABINE
     Indication: NEUROENDOCRINE TUMOUR
     Dosage: 540 MILLIGRAM/SQ. METER, CYCLICAL
     Route: 048
     Dates: start: 201906, end: 201908
  2. TEMOZOLOMIDE. [Suspect]
     Active Substance: TEMOZOLOMIDE
     Indication: NEUROENDOCRINE TUMOUR
     Dosage: 150 MILLIGRAM/SQ. METER
     Route: 048
     Dates: start: 201906, end: 201908
  3. CAPECITABINE, UNKNOWN [Suspect]
     Active Substance: CAPECITABINE
     Indication: METASTASES TO LIVER
     Route: 048
  4. TEMOZOLOMIDE. [Suspect]
     Active Substance: TEMOZOLOMIDE
     Indication: METASTASES TO LIVER
     Route: 048

REACTIONS (8)
  - Mastitis [Recovered/Resolved]
  - Breast necrosis [Recovered/Resolved]
  - Bone marrow failure [Recovered/Resolved]
  - Pneumonia fungal [Recovered/Resolved]
  - Pancytopenia [Recovered/Resolved]
  - Febrile neutropenia [Recovered/Resolved]
  - Haematotoxicity [Recovered/Resolved]
  - Myelosuppression [Recovered/Resolved]

NARRATIVE: CASE EVENT DATE: 201907
